FAERS Safety Report 9502396 (Version 1)
Quarter: 2013Q3

REPORT INFORMATION
  Report Type: Spontaneous
  Country: US (occurrence: US)
  Receive Date: 20130906
  Receipt Date: 20130906
  Transmission Date: 20140515
  Serious: No
  Sender: FDA-Public Use
  Company Number: US-BIOGENIDEC-2013BI084348

PATIENT
  Sex: Female

DRUGS (9)
  1. TYSABRI [Suspect]
     Indication: MULTIPLE SCLEROSIS
     Route: 042
  2. TECFIDERA [Concomitant]
     Indication: MULTIPLE SCLEROSIS
     Route: 048
  3. TECFIDERA [Concomitant]
     Indication: MULTIPLE SCLEROSIS
     Route: 048
  4. TECFIDERA [Concomitant]
     Indication: MULTIPLE SCLEROSIS
     Route: 048
  5. TECFIDERA [Concomitant]
     Indication: MULTIPLE SCLEROSIS
     Route: 048
  6. ZOCAR [Concomitant]
  7. ASPIRIN [Concomitant]
  8. LEVOTHYROXINE [Concomitant]
  9. AMPYRA [Concomitant]

REACTIONS (1)
  - Nystagmus [Not Recovered/Not Resolved]
